FAERS Safety Report 5291488-5 (Version None)
Quarter: 2007Q2

REPORT INFORMATION
  Report Type: 
  Country: None (occurrence: None)
  Receive Date: 20070403
  Receipt Date: 20070321
  Transmission Date: 20071010
  Serious: Yes (Hospitalization)
  Sender: FDA-Public Use
  Company Number: 2007SP000946

PATIENT
  Age: 72 Year
  Sex: Female
  Weight: 68.0396 kg

DRUGS (8)
  1. XOPENEX [Suspect]
     Indication: CHRONIC OBSTRUCTIVE PULMONARY DISEASE
     Dosage: 1.25 MG/3ML; Q4H; INHALATION
     Route: 055
     Dates: start: 20040101
  2. XOPENEX [Suspect]
     Indication: EMPHYSEMA
     Dosage: 1.25 MG/3ML; Q4H; INHALATION
     Route: 055
     Dates: start: 20040101
  3. TIOTROPIUM BROMIDE [Concomitant]
  4. LEVOTHYROXINE SODIUM [Concomitant]
  5. ALPRAZOLAM [Concomitant]
  6. LEXAPRO [Concomitant]
  7. LISINOPRIL [Concomitant]
  8. OXYGEN [Concomitant]

REACTIONS (4)
  - DIARRHOEA [None]
  - DYSPNOEA [None]
  - INCORRECT DOSE ADMINISTERED [None]
  - NAUSEA [None]
